FAERS Safety Report 8493018-3 (Version None)
Quarter: 2012Q3

REPORT INFORMATION
  Report Type: 
  Country: None (occurrence: None)
  Receive Date: 20120706
  Receipt Date: 20120627
  Transmission Date: 20120928
  Serious: Yes (Life-Threatening, Hospitalization, Other)
  Sender: FDA-Public Use
  Company Number: MX-BRISTOL-MYERS SQUIBB COMPANY-16722886

PATIENT
  Age: 69 Year
  Sex: Female
  Weight: 64 kg

DRUGS (3)
  1. ASPIRIN [Concomitant]
     Indication: PROPHYLAXIS
     Dosage: TABLET
     Route: 048
     Dates: start: 20120426
  2. IRBESARTAN AND HYDROCHLOROTHIAZIDE [Suspect]
     Indication: HYPERTENSION
     Dosage: 1DF=1TAB,26APR2012 TO23MAY2012:INCREASED TO 300MG/12.5MG,23MAY2012TOONGOING:REDUCED TO 150MG/12.5MG
     Route: 048
     Dates: start: 20000101
  3. ANGIOTROFIN [Concomitant]
     Indication: HYPERTENSION
     Dosage: 1 DF = 1 TAB
     Route: 048
     Dates: start: 20120523

REACTIONS (3)
  - BRONCHITIS [None]
  - BREAST CANCER [None]
  - PULMONARY HYPERTENSION [None]
